FAERS Safety Report 5375720-5 (Version None)
Quarter: 2007Q2

REPORT INFORMATION
  Report Type: 
  Country: None (occurrence: None)
  Receive Date: 20070628
  Receipt Date: 20070620
  Transmission Date: 20071010
  Serious: Yes (Other)
  Sender: FDA-Public Use
  Company Number: 2007BI013390

PATIENT
  Age: 52 Year
  Sex: Female

DRUGS (1)
  1. NATALIZUMAB [Suspect]
     Indication: MULTIPLE SCLEROSIS
     Dosage: 300 MCG;QM;IV
     Route: 042
     Dates: start: 20070523

REACTIONS (2)
  - ANAEMIA [None]
  - HAEMORRHAGE [None]
